FAERS Safety Report 19475821 (Version 2)
Quarter: 2021Q3

REPORT INFORMATION
  Report Type: Spontaneous
  Country: US (occurrence: US)
  Receive Date: 20210630
  Receipt Date: 20210713
  Transmission Date: 20211014
  Serious: No
  Sender: FDA-Public Use
  Company Number: US-GILEAD-2021-0538655

PATIENT
  Age: 55 Year
  Sex: Male
  Weight: 63.49 kg

DRUGS (3)
  1. AMBRISENTAN [Suspect]
     Active Substance: AMBRISENTAN
     Indication: PULMONARY ARTERIAL HYPERTENSION
     Dosage: UNK
     Route: 065
     Dates: start: 2021
  2. REMODULIN [Suspect]
     Active Substance: TREPROSTINIL
     Indication: PULMONARY ARTERIAL HYPERTENSION
     Dosage: 0.00125 UG/KG
     Route: 058
     Dates: start: 20210604
  3. ADEMPAS [Suspect]
     Active Substance: RIOCIGUAT
     Indication: PRODUCT USED FOR UNKNOWN INDICATION
     Dosage: UNK
     Route: 065
     Dates: start: 2021

REACTIONS (9)
  - Musculoskeletal chest pain [Unknown]
  - Insomnia [Unknown]
  - Painful respiration [Unknown]
  - Infusion site pain [Recovering/Resolving]
  - Dyspnoea [Not Recovered/Not Resolved]
  - Back pain [Unknown]
  - Chest discomfort [Unknown]
  - Pain in extremity [Recovering/Resolving]
  - Pain [Unknown]

NARRATIVE: CASE EVENT DATE: 2021
